FAERS Safety Report 20030260 (Version 1)
Quarter: 2021Q4

REPORT INFORMATION
  Report Type: Spontaneous
  Country: US (occurrence: US)
  Receive Date: 20211103
  Receipt Date: 20211103
  Transmission Date: 20220303
  Serious: No
  Sender: FDA-Public Use
  Company Number: US-AMGEN-USASP2021167249

PATIENT
  Age: 16 Year

DRUGS (1)
  1. BLINCYTO [Suspect]
     Active Substance: BLINATUMOMAB
     Indication: Acute lymphocytic leukaemia
     Dosage: UNK
     Route: 065
     Dates: start: 20211022

REACTIONS (3)
  - Accidental exposure to product [Unknown]
  - Drug monitoring procedure incorrectly performed [Unknown]
  - Product administration error [Unknown]

NARRATIVE: CASE EVENT DATE: 20211001
